FAERS Safety Report 9636500 (Version 1)
Quarter: 2013Q4

REPORT INFORMATION
  Report Type: Report from Study
  Country: CA (occurrence: CA)
  Receive Date: 20131021
  Receipt Date: 20131021
  Transmission Date: 20140711
  Serious: Yes (Death)
  Sender: FDA-Public Use
  Company Number: CA-MYLANLABS-2013S1022792

PATIENT
  Age: 51 Year
  Sex: Male

DRUGS (12)
  1. GEN-CLOZAPINE TABLETS [Suspect]
     Dates: start: 19961025
  2. FENOFIBRATE MICRO [Concomitant]
  3. AAS [Concomitant]
  4. LOXAPINE [Concomitant]
  5. FLURAZEPAM [Concomitant]
  6. QUETIAPINE [Concomitant]
  7. PEGLYTE [Concomitant]
  8. SUPPOSITOIRES A LA GLYCERINE [Concomitant]
  9. ATENOLOL [Concomitant]
  10. NIACIN [Concomitant]
  11. PROCYCLIDINE [Concomitant]
  12. DULCOLAX (BISACODYL) [Concomitant]

REACTIONS (1)
  - Constipation [Fatal]
